FAERS Safety Report 9377709 (Version 1)
Quarter: 2013Q2

REPORT INFORMATION
  Report Type: Spontaneous
  Country: US (occurrence: None)
  Receive Date: 20130625
  Receipt Date: 20130625
  Transmission Date: 20140414
  Serious: Yes (Other)
  Sender: FDA-Public Use
  Company Number: SYM-2013-05083

PATIENT
  Age: 59 Year
  Sex: Female

DRUGS (8)
  1. TARGRETIN GEL [Suspect]
     Indication: MYCOSIS FUNGOIDES
     Route: 061
  2. TARGRETIN [Suspect]
     Indication: MYCOSIS FUNGOIDES
     Route: 048
  3. ONTAK [Suspect]
     Indication: MYCOSIS FUNGOIDES
     Route: 042
     Dates: start: 200008, end: 200103
  4. ACETAMINOPHEN (PARACETAMOL) (PARACETAMOL) [Concomitant]
  5. ANTIHISTAMINE (ANTIHISTAMINES) (NULL) [Concomitant]
  6. ATORVASTATIN (ATORVASTATIN) (ATORVASTATIN) [Concomitant]
  7. LEVOTHYROID (LEVOTHYROXINE SODIUM) (LEVOTHYROXINE SODIUM) [Concomitant]
  8. INTERFERON ALFA (INTERFERON ALFA) (INTERFERON ALFA) [Concomitant]

REACTIONS (6)
  - Myalgia [None]
  - Hypertriglyceridaemia [None]
  - Skin lesion [None]
  - Hepatitis [None]
  - Hypothyroidism [None]
  - Condition aggravated [None]
